FAERS Safety Report 4338172-X (Version None)
Quarter: 2004Q1

REPORT INFORMATION
  Report Type: 
  Country: None (occurrence: None)
  Receive Date: 20040329
  Receipt Date: 20040209
  Transmission Date: 20041129
  Serious: No
  Sender: FDA-Public Use
  Company Number: USA040258949

PATIENT
  Age: 10 Year
  Sex: Male

DRUGS (4)
  1. STRATTERA [Suspect]
     Indication: ATTENTION DEFICIT/HYPERACTIVITY DISORDER
     Dates: start: 20030301, end: 20030901
  2. STRATTERA [Suspect]
     Indication: DEPRESSION
     Dates: start: 20030301, end: 20030901
  3. STRATTERA [Suspect]
     Indication: TOURETTE'S DISORDER
     Dates: start: 20030301, end: 20030901
  4. CELEXA [Concomitant]

REACTIONS (7)
  - ANOREXIA [None]
  - ANXIETY [None]
  - ASTHENIA [None]
  - INSOMNIA [None]
  - INTENTIONAL SELF-INJURY [None]
  - MALAISE [None]
  - THINKING ABNORMAL [None]
